FAERS Safety Report 12041644 (Version 1)
Quarter: 2016Q1

REPORT INFORMATION
  Report Type: Report from Study
  Country: US (occurrence: US)
  Receive Date: 20160208
  Receipt Date: 20160208
  Transmission Date: 20160526
  Serious: Yes (Other)
  Sender: FDA-Public Use
  Company Number: US-BAYER-2016-021612

PATIENT
  Age: 52 Year
  Sex: Female

DRUGS (1)
  1. ADEMPAS [Suspect]
     Active Substance: RIOCIGUAT
     Indication: PULMONARY ARTERIAL HYPERTENSION
     Dosage: 1 MG, TID
     Route: 048
     Dates: start: 20151222, end: 20151223

REACTIONS (5)
  - Melaena [None]
  - Intentional product misuse [None]
  - Haematochezia [None]
  - Headache [None]
  - Dyspepsia [None]

NARRATIVE: CASE EVENT DATE: 20151222
